FAERS Safety Report 8135727-1 (Version None)
Quarter: 2012Q1

REPORT INFORMATION
  Report Type: 
  Country: None (occurrence: None)
  Receive Date: 20120214
  Receipt Date: 20120203
  Transmission Date: 20120608
  Serious: Yes (Hospitalization, Disabling, Other)
  Sender: FDA-Public Use
  Company Number: CA-ELI_LILLY_AND_COMPANY-CA201112002274

PATIENT
  Sex: Female
  Weight: 50 kg

DRUGS (15)
  1. PLAQUENIL [Concomitant]
     Dosage: 400 MG, QD
     Route: 048
  2. SINGULAIR [Concomitant]
     Dosage: 60 MG, QD
     Route: 048
  3. SYMBICORT [Concomitant]
     Dosage: 2 DF, BID
  4. THEO-DUR [Concomitant]
     Dosage: 300 MG, BID
     Route: 048
  5. FORTEO [Suspect]
     Indication: OSTEOPOROSIS
     Dosage: 20 UG, QD
     Route: 058
     Dates: start: 20091214, end: 20111201
  6. PREDNISONE TAB [Concomitant]
     Dosage: 40 MG, QD
  7. ATROVENT [Concomitant]
     Dosage: UNK, PRN
  8. VITAMIN D [Concomitant]
     Indication: RICKETS FAMILIAL HYPOPHOSPHATAEMIC
     Dosage: 3000 IU, UNK
  9. PREDNISONE TAB [Concomitant]
     Dosage: 70 MG, QD
  10. NEXIUM [Concomitant]
     Dosage: 40 MG, QD
     Route: 048
  11. TYLENOL W/ CODEINE NO. 3 [Concomitant]
  12. DANAZOL [Concomitant]
     Dosage: 100 MG, QOD
     Route: 048
  13. PREDNISONE TAB [Concomitant]
     Dosage: 150 MG, QD
  14. PREDNISONE TAB [Concomitant]
     Dosage: 120 MG, QD
     Dates: end: 20111219
  15. VENTOLIN [Concomitant]
     Dosage: UNK, PRN

REACTIONS (8)
  - ASTHMA [None]
  - CACHEXIA [None]
  - BONE DENSITY DECREASED [None]
  - HYPERGLYCAEMIA [None]
  - CUSHING'S SYNDROME [None]
  - FLUID RETENTION [None]
  - MOBILITY DECREASED [None]
  - PNEUMONIA ASPIRATION [None]
